FAERS Safety Report 19943377 (Version 3)
Quarter: 2021Q4

REPORT INFORMATION
  Report Type: Spontaneous
  Country: US (occurrence: US)
  Receive Date: 20211011
  Receipt Date: 20211019
  Transmission Date: 20220303
  Serious: No
  Sender: FDA-Public Use
  Company Number: US-SANOFI-00803112

PATIENT
  Age: 66 Year
  Sex: Female

DRUGS (1)
  1. ALLEGRA ALLERGY [Suspect]
     Active Substance: FEXOFENADINE HYDROCHLORIDE
     Indication: White blood cell disorder
     Dosage: 180 MG, QD
     Dates: start: 20211005

REACTIONS (5)
  - COVID-19 [Unknown]
  - White blood cell disorder [Unknown]
  - Flushing [Unknown]
  - Pruritus [Unknown]
  - Drug ineffective [Unknown]
